FAERS Safety Report 6493572-7 (Version None)
Quarter: 2009Q4

REPORT INFORMATION
  Report Type: 
  Country: None (occurrence: None)
  Receive Date: 20091209
  Receipt Date: 20091127
  Transmission Date: 20100525
  Serious: Yes (Other)
  Sender: FDA-Public Use
  Company Number: ADR52542009

PATIENT

DRUGS (3)
  1. LAMOTRIGINE [Suspect]
     Dosage: 100 DF, 1 DAYS TRANSPLACENTAL
     Route: 064
  2. VALPROIC ACID [Concomitant]
  3. FOLIC ACID [Concomitant]

REACTIONS (2)
  - AUTISM [None]
  - MATERNAL DRUGS AFFECTING FOETUS [None]
